FAERS Safety Report 11164270 (Version 1)
Quarter: 2015Q2

REPORT INFORMATION
  Report Type: Spontaneous
  Country: US (occurrence: US)
  Receive Date: 20150604
  Receipt Date: 20150604
  Transmission Date: 20150821
  Serious: No
  Sender: FDA-Public Use
  Company Number: US-AMGEN-USASP2015052707

PATIENT
  Age: 44 Year
  Sex: Female

DRUGS (2)
  1. ENBREL [Suspect]
     Active Substance: ETANERCEPT
     Indication: SJOGREN^S SYNDROME
  2. ENBREL [Suspect]
     Active Substance: ETANERCEPT
     Indication: OSTEOARTHRITIS
     Dosage: 25 MG, QWK
     Route: 065
     Dates: start: 20150512, end: 20150512

REACTIONS (10)
  - Pain [Recovering/Resolving]
  - Off label use [Unknown]
  - Injection site urticaria [Recovering/Resolving]
  - Influenza [Recovering/Resolving]
  - Bedridden [Recovering/Resolving]
  - Pruritus generalised [Recovering/Resolving]
  - Malaise [Recovering/Resolving]
  - Injection site erythema [Recovering/Resolving]
  - Feeling abnormal [Recovering/Resolving]
  - Dizziness [Recovered/Resolved]

NARRATIVE: CASE EVENT DATE: 20150512
